FAERS Safety Report 15259673 (Version 1)
Quarter: 2018Q3

REPORT INFORMATION
  Report Type: Spontaneous
  Country: FR (occurrence: FR)
  Receive Date: 20180809
  Receipt Date: 20180809
  Transmission Date: 20181010
  Serious: Yes (Hospitalization)
  Sender: FDA-Public Use
  Company Number: FR-PFIZER INC-2018316282

PATIENT
  Age: 53 Year
  Sex: Male
  Weight: 69 kg

DRUGS (6)
  1. DOCETAXEL ACCORD [Suspect]
     Active Substance: DOCETAXEL
     Indication: THROAT CANCER
     Dosage: 133.5 MG, SINGLE
     Route: 041
     Dates: start: 20180514, end: 20180514
  2. FENTANYL. [Concomitant]
     Active Substance: FENTANYL
     Dosage: UNK
  3. ACTISKENAN [Concomitant]
     Active Substance: MORPHINE SULFATE
     Dosage: UNK
  4. CISPLATINE MYLAN [Suspect]
     Active Substance: CISPLATIN
     Indication: THROAT CANCER
     Dosage: 133.5 MG, SINGLE
     Route: 041
     Dates: start: 20180514, end: 20180514
  5. DALACINE [Suspect]
     Active Substance: CLINDAMYCIN
     Indication: ALLERGY TEST
     Dosage: UNK
     Route: 048
     Dates: start: 20180514, end: 20180514
  6. FLUOROURACILE ACCORD [Suspect]
     Active Substance: FLUOROURACIL
     Indication: THROAT CANCER
     Dosage: 5340 MG, ON 5 DAYS
     Route: 041
     Dates: start: 20180514, end: 20180518

REACTIONS (3)
  - Face oedema [Recovered/Resolved]
  - Rash [Recovered/Resolved]
  - Pruritus [Recovered/Resolved]

NARRATIVE: CASE EVENT DATE: 20180523
